FAERS Safety Report 15011370 (Version 2)
Quarter: 2018Q4

REPORT INFORMATION
  Report Type: Spontaneous
  Country: US (occurrence: US)
  Receive Date: 20180614
  Receipt Date: 20181026
  Transmission Date: 20190204
  Serious: Yes (Other)
  Sender: FDA-Public Use
  Company Number: US-OTSUKA-2018_015493

PATIENT
  Age: 42 Year
  Sex: Female

DRUGS (3)
  1. ABILIFY [Suspect]
     Active Substance: ARIPIPRAZOLE
     Indication: MAJOR DEPRESSION
  2. ABILIFY [Suspect]
     Active Substance: ARIPIPRAZOLE
     Indication: EATING DISORDER
  3. ABILIFY [Suspect]
     Active Substance: ARIPIPRAZOLE
     Indication: ANXIETY
     Dosage: 10 MG, QD
     Route: 065
     Dates: start: 201307, end: 201410

REACTIONS (20)
  - Weight increased [Unknown]
  - High density lipoprotein increased [Unknown]
  - Blood chloride increased [Unknown]
  - Blood sodium increased [Unknown]
  - Anaemia vitamin B12 deficiency [Unknown]
  - Haematocrit decreased [Unknown]
  - Suicide attempt [Recovered/Resolved]
  - Red blood cell count decreased [Unknown]
  - Blood alkaline phosphatase increased [Unknown]
  - Compulsive shopping [Recovered/Resolved]
  - Eating disorder [Recovered/Resolved]
  - Neutrophil count decreased [Unknown]
  - Gambling disorder [Recovered/Resolved]
  - Haemoglobin decreased [Unknown]
  - Blood urea decreased [Unknown]
  - Obesity [Unknown]
  - Economic problem [Unknown]
  - Product use in unapproved indication [Unknown]
  - Suicidal ideation [Recovered/Resolved]
  - White blood cell count decreased [Unknown]

NARRATIVE: CASE EVENT DATE: 201307
